FAERS Safety Report 13272612 (Version 4)
Quarter: 2018Q1

REPORT INFORMATION
  Report Type: Spontaneous
  Country: US (occurrence: US)
  Receive Date: 20170227
  Receipt Date: 20180130
  Transmission Date: 20180508
  Serious: No
  Sender: FDA-Public Use
  Company Number: US-PFIZER INC-2017081687

PATIENT
  Age: 42 Year
  Sex: Female

DRUGS (2)
  1. IBRANCE [Suspect]
     Active Substance: PALBOCICLIB
     Indication: BREAST CANCER FEMALE
     Dosage: 125 MG, CYCLIC, (ONCE DAILY FOR 21 DAYS IN A ROW FOLLOWED BY 7 DAYS OFF)
     Route: 048
     Dates: start: 20160711
  2. LETROZOLE. [Suspect]
     Active Substance: LETROZOLE
     Dosage: UNK

REACTIONS (7)
  - Stomatitis [Unknown]
  - Fatigue [Unknown]
  - White blood cell count decreased [Unknown]
  - Myalgia [Unknown]
  - Skin lesion [Unknown]
  - Arthralgia [Unknown]
  - Hot flush [Unknown]
